FAERS Safety Report 7597235 (Version 13)
Quarter: 2020Q1

REPORT INFORMATION
  Report Type: Spontaneous
  Country: GB (occurrence: GB)
  Receive Date: 20100920
  Receipt Date: 20200304
  Transmission Date: 20200409
  Serious: Yes (Hospitalization, Other)
  Sender: FDA-Public Use
  Company Number: GB-PFIZER INC-2010113162

PATIENT
  Age: 35 Year
  Sex: Female
  Weight: 54 kg

DRUGS (74)
  1. SERTRALINE HCL [Suspect]
     Active Substance: SERTRALINE HYDROCHLORIDE
     Dosage: 200 MILLIGRAM, QD (45 WEEKS GESTATION PERIOD)
     Route: 048
  2. LANSOPRAZOLE. [Suspect]
     Active Substance: LANSOPRAZOLE
     Dosage: 30 MILLIGRAM (45 WEEKS GESTATION PERIOD)
     Route: 048
     Dates: start: 20100730
  3. DIHYDROCODEINE [Suspect]
     Active Substance: DIHYDROCODEINE
     Indication: BACK PAIN
     Dosage: 30 MG, 1-2 THREE TIMES DAILY; 30MG TABS 1-2TDS
     Route: 065
     Dates: start: 20090923
  4. DIHYDROCODEINE [Suspect]
     Active Substance: DIHYDROCODEINE
     Dosage: UNK UNK, BID; 30MG TABS 1-2TDS
     Route: 065
  5. LAMICTAL [Suspect]
     Active Substance: LAMOTRIGINE
     Dosage: 100 MILLIGRAM, BID
     Route: 065
     Dates: start: 20100730
  6. AMOXICILLIN TRIHYDRATE [Concomitant]
     Active Substance: AMOXICILLIN
     Dosage: 500 MG, 3X/DAY AT 7 WEEKS GESTATION
     Route: 048
     Dates: start: 20091023
  7. AMOXICILLIN TRIHYDRATE [Concomitant]
     Active Substance: AMOXICILLIN
     Dosage: UNK (7 WEEKS GESTATION PERIOD)
     Route: 048
     Dates: start: 20100328
  8. BETAMETHASONE. [Concomitant]
     Active Substance: BETAMETHASONE
     Dosage: 0.1 PERCENT, 2X/DAY TO EACH NOSTRIL
     Route: 045
     Dates: start: 20090722
  9. CLOBAZAM. [Concomitant]
     Active Substance: CLOBAZAM
     Dosage: 0.5 DF, UNK (43 WEEKS GESTATION PERIOD)
     Route: 065
     Dates: start: 20100709
  10. CLOBAZAM. [Concomitant]
     Active Substance: CLOBAZAM
     Dosage: UNK (43 WEEKS GESTATION PERIOD)
     Route: 065
  11. OMEPRAZOLE. [Concomitant]
     Active Substance: OMEPRAZOLE
     Dosage: 20 MILLIGRAM, QD
     Route: 048
     Dates: start: 20090501
  12. LANSOPRAZOLE. [Suspect]
     Active Substance: LANSOPRAZOLE
     Dosage: UNK
     Route: 048
  13. LANSOPRAZOLE. [Suspect]
     Active Substance: LANSOPRAZOLE
     Dosage: 30 MILLIGRAM (45 WEEKS GESTATION PERIOD)
     Route: 048
  14. ARIPIPRAZOLE. [Suspect]
     Active Substance: ARIPIPRAZOLE
     Dosage: 30 MG, UNK AT 22 WEEKS GESTATION
     Route: 048
  15. PROPRANOLOL [Suspect]
     Active Substance: PROPRANOLOL HYDROCHLORIDE
     Dosage: 10 MILLIGRAM (45 WEEKS GESTATION PERIOD)
     Route: 048
     Dates: start: 20100730
  16. LAMICTAL [Suspect]
     Active Substance: LAMOTRIGINE
     Indication: EPILEPSY
     Dosage: 400 MILLIGRAM, BID
     Route: 048
     Dates: start: 2004
  17. BETAMETHASONE. [Concomitant]
     Active Substance: BETAMETHASONE
     Dosage: 0.1 PERCENT, BID
     Route: 045
     Dates: start: 20090722
  18. FOLIC ACID. [Concomitant]
     Active Substance: FOLIC ACID
     Dosage: 5 MILLIGRAM (12 WEEKS GESTATION PERIOD)
     Route: 048
     Dates: start: 20091221
  19. MICONAZOLE. [Concomitant]
     Active Substance: MICONAZOLE
     Dosage: 2 PERCENT CREAM AND 24MG/ML (20MG/GRAM) DAILY DOSE
     Dates: start: 20100604
  20. MICONAZOLE. [Concomitant]
     Active Substance: MICONAZOLE
     Dosage: 24 MILLIGRAM PER MILLILITRE, QD (41 WEEKS GESTATION PERIOD)
     Route: 065
     Dates: start: 20100618
  21. MICONAZOLE. [Concomitant]
     Active Substance: MICONAZOLE
     Dosage: UNK UNK, QD (41 WEEKS GESTATION PERIOD)
     Route: 065
     Dates: start: 20100604
  22. PROCHLORPERAZINE. [Concomitant]
     Active Substance: PROCHLORPERAZINE
     Dosage: 5 MILLIGRAM (15 WEEKS GESTATION PERIOD)
     Route: 048
  23. LANSOPRAZOLE. [Suspect]
     Active Substance: LANSOPRAZOLE
     Dosage: 30 MG, UNK AT 22 WEEKS GESTATION
     Route: 048
  24. LAMICTAL [Suspect]
     Active Substance: LAMOTRIGINE
     Dosage: 25 MILLIGRAM, BID
     Route: 065
     Dates: start: 20100702
  25. LAMICTAL [Suspect]
     Active Substance: LAMOTRIGINE
     Dosage: 800 MILLIGRAM, QD
     Route: 048
  26. AMOXICILLIN TRIHYDRATE [Concomitant]
     Active Substance: AMOXICILLIN
     Dosage: 1 DF, 3X/DAY
     Dates: start: 20100326
  27. AMOXICILLIN TRIHYDRATE [Concomitant]
     Active Substance: AMOXICILLIN
     Dosage: 500 MILLIGRAM (7 WEEKS GESTATION PERIOD)
     Route: 065
     Dates: start: 20100226
  28. MICONAZOLE. [Concomitant]
     Active Substance: MICONAZOLE
     Dosage: UNK (41 WEEKS GESTATION PERIOD)
     Route: 065
  29. PROPRANOLOL [Suspect]
     Active Substance: PROPRANOLOL HYDROCHLORIDE
     Dosage: 10 MILLIGRAM (45 WEEKS GESTATION PERIOD)
     Route: 048
  30. LAMICTAL [Suspect]
     Active Substance: LAMOTRIGINE
     Dosage: 50 MILLIGRAM, BID
     Route: 065
     Dates: start: 20100618
  31. LAMICTAL [Suspect]
     Active Substance: LAMOTRIGINE
     Dosage: 200 MILLIGRAM
     Route: 065
     Dates: start: 20100730
  32. AMOXICILLIN TRIHYDRATE [Concomitant]
     Active Substance: AMOXICILLIN
     Dosage: 500 MG, 3X/DAY
     Dates: start: 20100226
  33. SERTRALINE HCL [Suspect]
     Active Substance: SERTRALINE HYDROCHLORIDE
     Dosage: UNK (45 WEEKS GESTATION PERIOD)
     Route: 065
  34. AMOXICILLIN TRIHYDRATE [Concomitant]
     Active Substance: AMOXICILLIN
     Dosage: 500 MG, 3X/DAY
     Dates: start: 20091130
  35. AMOXICILLIN TRIHYDRATE [Concomitant]
     Active Substance: AMOXICILLIN
     Dosage: 500 MILLIGRAM (7 WEEKS GESTATION PERIOD)
     Route: 065
     Dates: start: 20100226
  36. CHLORAMPHENICOL [Concomitant]
     Active Substance: CHLORAMPHENICOL
     Dosage: UNK UNK, QD
     Route: 048
     Dates: start: 20090722
  37. CLOBAZAM. [Concomitant]
     Active Substance: CLOBAZAM
     Dosage: 0.5 DF, 2X/DAY (43 WEEKS GESTATION PERIOD)
     Route: 065
     Dates: start: 20100709
  38. CLOBAZAM. [Concomitant]
     Active Substance: CLOBAZAM
     Dosage: UNK (43 WEEKS GESTATION PERIOD)
     Route: 065
  39. CO-AMOXICLAV [Concomitant]
     Active Substance: AMOXICILLIN\CLAVULANATE POTASSIUM
     Dosage: 500/125; THREE TIMES DAILY DOSE
  40. FOLIC ACID. [Concomitant]
     Active Substance: FOLIC ACID
     Dosage: 5 MILLIGRAM (12 WEEKS GESTATION PERIOD)
     Route: 048
     Dates: start: 20091130
  41. MICONAZOLE. [Concomitant]
     Active Substance: MICONAZOLE
     Dosage: 24MG/ML (20MG/GRAM); DAILY
     Dates: start: 20100702
  42. SERTRALINE HCL [Suspect]
     Active Substance: SERTRALINE HYDROCHLORIDE
     Dosage: 100 MILLIGRAM, QD (45 WEEKS GESTATION PERIOD)
     Route: 048
  43. ARIPIPRAZOLE. [Suspect]
     Active Substance: ARIPIPRAZOLE
     Dosage: 30 MG, UNK
     Route: 065
  44. LAMICTAL [Suspect]
     Active Substance: LAMOTRIGINE
     Dosage: 800 MILLIGRAM, QD
     Route: 048
  45. CHLORAMPHENICOL [Concomitant]
     Active Substance: CHLORAMPHENICOL
     Dosage: 0.5 PERCENT, 4X/DAY
     Route: 047
     Dates: start: 20090923
  46. CO-AMOXICLAV [Concomitant]
     Active Substance: AMOXICILLIN\CLAVULANATE POTASSIUM
     Dosage: 500/125; TDS
     Dates: start: 20100517
  47. LACTULOSE. [Concomitant]
     Active Substance: LACTULOSE
     Dosage: UNK UNK, QD; 1DF=3.35G/5ML 5 TO 10ML/D
     Route: 065
  48. LIDOCAINE. [Concomitant]
     Active Substance: LIDOCAINE
     Dosage: 5 PERCENT (1 DF), AS NEEDED
     Route: 065
     Dates: start: 20100604
  49. LIDOCAINE. [Concomitant]
     Active Substance: LIDOCAINE
     Dosage: 5 PERCENT MEDICATED PLASTER, AS NEEDED (10 PATCHES)
     Route: 065
     Dates: start: 20100611
  50. MICONAZOLE. [Concomitant]
     Active Substance: MICONAZOLE
     Dosage: UNK UNK, QD (41 WEEKS GESTATION PERIOD)
     Route: 065
     Dates: start: 20100702
  51. SERTRALINE HCL [Suspect]
     Active Substance: SERTRALINE HYDROCHLORIDE
     Dosage: 100 MG, 2X/DAY
     Route: 048
  52. SERTRALINE HCL [Suspect]
     Active Substance: SERTRALINE HYDROCHLORIDE
     Dosage: 100 MILLIGRAM, BID (45 WEEKS GESTATION PERIOD)
     Route: 048
     Dates: start: 20100730
  53. NORETHISTERONE [Suspect]
     Active Substance: NORETHINDRONE
     Dosage: UNK (7 WEEKS GESTATION PERIOD)
     Route: 065
  54. LANSOPRAZOLE. [Suspect]
     Active Substance: LANSOPRAZOLE
     Dosage: 30 MG, UNK
     Route: 065
  55. ARIPIPRAZOLE. [Suspect]
     Active Substance: ARIPIPRAZOLE
     Dosage: 30MG UNIT DOSE AND 15 MG UNIT DOSE; UNK
  56. AMOXICILLIN TRIHYDRATE [Concomitant]
     Active Substance: AMOXICILLIN
     Dosage: 500 MILLIGRAM, TID (7 WEEKS GESTATION PERIOD)
     Route: 065
     Dates: start: 20100328
  57. BETAMETHASONE. [Concomitant]
     Active Substance: BETAMETHASONE
     Dosage: 0.1 PERCENT, 2X/DAY TO EACH NOSTRIL
     Route: 045
     Dates: start: 20100702, end: 20100708
  58. LACTULOSE. [Concomitant]
     Active Substance: LACTULOSE
     Dosage: 3.35G/5ML 5 TO 10ML/D
     Route: 065
     Dates: start: 20090722
  59. LACTULOSE. [Concomitant]
     Active Substance: LACTULOSE
     Dosage: 3.35G/5ML 5 TO 10ML/D
     Route: 065
     Dates: start: 20090506
  60. MICONAZOLE. [Concomitant]
     Active Substance: MICONAZOLE
     Dosage: UNK (41 WEEKS GESTATION PERIOD)
     Route: 065
  61. SERTRALINE HCL [Suspect]
     Active Substance: SERTRALINE HYDROCHLORIDE
     Dosage: UNK
  62. NORETHISTERONE [Suspect]
     Active Substance: NORETHINDRONE
     Indication: BACK PAIN
     Dosage: 350 MILLIGRAM (7 WEEKS GESTATION PERIOD)
     Route: 048
     Dates: start: 20091023
  63. ARIPIPRAZOLE. [Suspect]
     Active Substance: ARIPIPRAZOLE
     Dosage: 30 MILLIGRAM (22 WEEKS GESTATION PERIOD)
     Route: 048
     Dates: start: 20100730
  64. ARIPIPRAZOLE. [Suspect]
     Active Substance: ARIPIPRAZOLE
     Dosage: 15 MILLIGRAM (22 WEEKS GESTATION PERIOD)
     Route: 065
     Dates: start: 20100702
  65. ARIPIPRAZOLE. [Suspect]
     Active Substance: ARIPIPRAZOLE
     Dosage: 30 MILLIGRAM (22 WEEKS GESTATION PERIOD)
     Route: 048
     Dates: start: 20100205
  66. LAMICTAL [Suspect]
     Active Substance: LAMOTRIGINE
     Dosage: 800 MILLIGRAM, QD
     Route: 048
     Dates: start: 20100730
  67. CHLORAMPHENICOL [Concomitant]
     Active Substance: CHLORAMPHENICOL
     Dosage: 0.5 %, 4X/DAY
     Route: 048
     Dates: start: 20090722
  68. CLOBAZAM. [Concomitant]
     Active Substance: CLOBAZAM
     Dosage: 1 DF, 2X/DAY (43 WEEKS GESTATION PERIOD)
     Route: 065
     Dates: start: 20100702, end: 20100708
  69. DICLOFENAC SODIUM. [Concomitant]
     Active Substance: DICLOFENAC SODIUM
     Dosage: 50 MG, 3X/DAY, GEL
     Route: 065
     Dates: start: 20090501
  70. DICLOFENAC SODIUM. [Concomitant]
     Active Substance: DICLOFENAC SODIUM
     Dosage: 75 MG, BID
     Route: 065
     Dates: start: 20090501
  71. FOLIC ACID. [Concomitant]
     Active Substance: FOLIC ACID
     Dosage: 5 MG, UNK AT 12 WEEKS GESTATION
     Route: 048
     Dates: start: 20091130
  72. PROCHLORPERAZINE. [Concomitant]
     Active Substance: PROCHLORPERAZINE
     Indication: NAUSEA
     Dosage: 5 MG, AS NEEDED FOR NAUSEA (15 WEEKS GESTATION PERIOD)
     Route: 048
     Dates: start: 20091221
  73. PROCHLORPERAZINE. [Concomitant]
     Active Substance: PROCHLORPERAZINE
     Dosage: 5 MG, AS NEEDED FOR NAUSEA (15 WEEKS GESTATION PERIOD)
     Route: 065
     Dates: start: 20100122
  74. PROCHLORPERAZINE. [Concomitant]
     Active Substance: PROCHLORPERAZINE
     Dosage: 5 MILLIGRAM (15 WEEKS GESTATION PERIOD)
     Route: 048

REACTIONS (5)
  - Live birth [Unknown]
  - Cholestasis of pregnancy [Recovered/Resolved]
  - Premature labour [Unknown]
  - Seizure [Not Recovered/Not Resolved]
  - Maternal exposure during pregnancy [Unknown]

NARRATIVE: CASE EVENT DATE: 20090902
